FAERS Safety Report 5424695-9 (Version None)
Quarter: 2007Q3

REPORT INFORMATION
  Report Type: 
  Country: None (occurrence: None)
  Receive Date: 20070824
  Receipt Date: 20070815
  Transmission Date: 20080115
  Serious: Yes (Other)
  Sender: FDA-Public Use
  Company Number: US-JNJFOC-20070803545

PATIENT
  Sex: Female
  Weight: 58.97 kg

DRUGS (3)
  1. FENTANYL TRANSDERMAL SYSTEM [Suspect]
     Indication: PROCEDURAL PAIN
     Route: 062
  2. NEURONTIN [Concomitant]
     Indication: NEURALGIA
     Route: 048
  3. VALIUM [Concomitant]
     Indication: MUSCLE RELAXANT THERAPY
     Route: 048

REACTIONS (3)
  - INCORRECT DRUG ADMINISTRATION DURATION [None]
  - INTERVERTEBRAL DISC PROTRUSION [None]
  - PHARMACEUTICAL PRODUCT COMPLAINT [None]
